FAERS Safety Report 7918006-4 (Version None)
Quarter: 2011Q4

REPORT INFORMATION
  Report Type: 
  Country: None (occurrence: None)
  Receive Date: 20111116
  Receipt Date: 20111108
  Transmission Date: 20120403
  Serious: Yes (Hospitalization)
  Sender: FDA-Public Use
  Company Number: DE-JNJFOC-20111103488

PATIENT
  Age: 62 Year
  Sex: Male

DRUGS (1)
  1. LEVOFLOXACIN [Suspect]
     Indication: URINARY TRACT INFECTION
     Dosage: 2X250 MG
     Route: 048
     Dates: start: 20110101

REACTIONS (3)
  - EPISTAXIS [None]
  - PULMONARY EMBOLISM [None]
  - DYSPNOEA [None]
